FAERS Safety Report 14893320 (Version 1)
Quarter: 2018Q2

REPORT INFORMATION
  Report Type: Spontaneous
  Country: US (occurrence: US)
  Receive Date: 20180514
  Receipt Date: 20180514
  Transmission Date: 20180711
  Serious: No
  Sender: FDA-Public Use
  Company Number: US-ELI_LILLY_AND_COMPANY-US201805001119

PATIENT
  Sex: Male

DRUGS (1)
  1. CIALIS [Suspect]
     Active Substance: TADALAFIL
     Indication: PROSTATIC DISORDER
     Dosage: UNK, UNKNOWN
     Route: 065

REACTIONS (4)
  - Dyspepsia [Unknown]
  - Ear disorder [Unknown]
  - Gastrooesophageal reflux disease [Unknown]
  - Colour blindness [Unknown]
